FAERS Safety Report 9356310 (Version 1)
Quarter: 2013Q2

REPORT INFORMATION
  Report Type: Spontaneous
  Country: FR (occurrence: FR)
  Receive Date: 20130619
  Receipt Date: 20130619
  Transmission Date: 20140414
  Serious: Yes (Death)
  Sender: FDA-Public Use
  Company Number: FR-TEVA-413643ISR

PATIENT
  Age: 96 Year
  Sex: Female

DRUGS (3)
  1. FUROSEMIDE RATIOPHARM 40 MG [Suspect]
     Dosage: LONG TERM TREATMENT
     Route: 048
  2. UNSPECIFIED HEART TREATMENT [Concomitant]
  3. DOLIPRANE [Concomitant]

REACTIONS (1)
  - Death [Fatal]
